FAERS Safety Report 9554068 (Version 1)
Quarter: 2013Q3

REPORT INFORMATION
  Report Type: Spontaneous
  Country: CA (occurrence: CA)
  Receive Date: 20130925
  Receipt Date: 20130925
  Transmission Date: 20140515
  Serious: Yes (Other)
  Sender: FDA-Public Use
  Company Number: CA-ELI_LILLY_AND_COMPANY-CA201309004625

PATIENT
  Sex: Female

DRUGS (3)
  1. CYMBALTA [Suspect]
     Indication: ANXIETY
     Dosage: UNK UNK, QD
     Dates: start: 2012
  2. CYMBALTA [Suspect]
     Indication: BIPOLAR DISORDER
  3. CYMBALTA [Suspect]
     Indication: AFFECTIVE DISORDER

REACTIONS (7)
  - Endometriosis [Unknown]
  - Blister [Unknown]
  - Vaginal haemorrhage [Unknown]
  - Rectal haemorrhage [Unknown]
  - Fatigue [Unknown]
  - Headache [Unknown]
  - Myalgia [Unknown]
